FAERS Safety Report 14259126 (Version 1)
Quarter: 2017Q4

REPORT INFORMATION
  Report Type: Spontaneous
  Country: US (occurrence: US)
  Receive Date: 20171207
  Receipt Date: 20171207
  Transmission Date: 20180321
  Serious: No
  Sender: FDA-Public Use
  Company Number: None

PATIENT
  Age: 33 Year
  Sex: Male
  Weight: 80.1 kg

DRUGS (5)
  1. FLONASE [Suspect]
     Active Substance: FLUTICASONE PROPIONATE
     Indication: SINUSITIS
     Route: 055
     Dates: start: 20171201, end: 20171205
  2. LISINOPRIL. [Concomitant]
     Active Substance: LISINOPRIL
  3. FLONASE [Suspect]
     Active Substance: FLUTICASONE PROPIONATE
     Indication: GASTROOESOPHAGEAL REFLUX DISEASE
     Route: 055
     Dates: start: 20171201, end: 20171205
  4. CHLORTHALIDONE. [Concomitant]
     Active Substance: CHLORTHALIDONE
  5. NEBIVOLOL. [Concomitant]
     Active Substance: NEBIVOLOL

REACTIONS (4)
  - Pulse abnormal [None]
  - Anxiety [None]
  - Nervousness [None]
  - Blood pressure increased [None]

NARRATIVE: CASE EVENT DATE: 20171205
